FAERS Safety Report 7121769-1 (Version None)
Quarter: 2010Q4

REPORT INFORMATION
  Report Type: 
  Country: None (occurrence: None)
  Receive Date: 20101124
  Receipt Date: 20101116
  Transmission Date: 20110411
  Serious: Yes (Hospitalization, Other)
  Sender: FDA-Public Use
  Company Number: US-ROCHE-722559

PATIENT
  Sex: Female
  Weight: 73.9 kg

DRUGS (2)
  1. ACCUTANE [Suspect]
     Indication: PSORIASIS
     Route: 065
     Dates: start: 20010101, end: 20030101
  2. UREA CREAM [Concomitant]

REACTIONS (3)
  - CROHN'S DISEASE [None]
  - INFLAMMATORY BOWEL DISEASE [None]
  - INTESTINAL STENOSIS [None]
